FAERS Safety Report 9345521 (Version 2)
Quarter: 2013Q4

REPORT INFORMATION
  Report Type: Report from Study
  Country: CA (occurrence: CA)
  Receive Date: 20130613
  Receipt Date: 20131107
  Transmission Date: 20140711
  Serious: Yes (Other)
  Sender: FDA-Public Use
  Company Number: CA-JNJFOC-20130500331

PATIENT
  Age: 23 Year
  Sex: Male
  Weight: 84 kg

DRUGS (2)
  1. REMICADE [Suspect]
     Indication: CROHN^S DISEASE
     Route: 042
     Dates: start: 20120329
  2. IMURAN [Concomitant]
     Route: 065

REACTIONS (7)
  - Road traffic accident [Unknown]
  - Limb injury [Not Recovered/Not Resolved]
  - Injury [Unknown]
  - Local swelling [Not Recovered/Not Resolved]
  - Erythema [Not Recovered/Not Resolved]
  - Excoriation [Unknown]
  - Contusion [Unknown]
